FAERS Safety Report 4346230-9 (Version None)
Quarter: 2004Q2

REPORT INFORMATION
  Report Type: 
  Country: None (occurrence: None)
  Receive Date: 20040426
  Receipt Date: 20040415
  Transmission Date: 20050107
  Serious: Yes (Hospitalization)
  Sender: FDA-Public Use
  Company Number: 200411589FR

PATIENT
  Age: 20 Year
  Sex: Female

DRUGS (4)
  1. FLAGYL [Suspect]
     Indication: SALPINGITIS
     Route: 048
     Dates: start: 19990915, end: 19991115
  2. IMOVANE [Suspect]
     Route: 048
  3. ZINNAT [Suspect]
     Indication: SALPINGITIS
     Route: 048
     Dates: start: 19990915, end: 19991115
  4. METHADONE [Suspect]
     Indication: DRUG WITHDRAWAL SYNDROME
     Route: 048
     Dates: start: 19990615

REACTIONS (1)
  - POLYNEUROPATHY [None]
